FAERS Safety Report 5533187-8 (Version None)
Quarter: 2007Q4

REPORT INFORMATION
  Report Type: 
  Country: None (occurrence: None)
  Receive Date: 20071130
  Receipt Date: 20071130
  Transmission Date: 20080405
  Serious: Yes (Life-Threatening, Hospitalization)
  Sender: FDA-Public Use
  Company Number: None

PATIENT
  Age: 22 Year
  Sex: Female
  Weight: 75 kg

DRUGS (1)
  1. ORTHO TRI-CYCLEN LO [Suspect]
     Indication: ORAL CONTRACEPTION
     Dosage: 1 TAB  DAILY  PO
     Route: 048
     Dates: start: 20071026, end: 20071118

REACTIONS (5)
  - CONVULSION [None]
  - DEHYDRATION [None]
  - MUSCULAR WEAKNESS [None]
  - SUBARACHNOID HAEMORRHAGE [None]
  - SUPERIOR SAGITTAL SINUS THROMBOSIS [None]
